FAERS Safety Report 23637691 (Version 1)
Quarter: 2024Q1

REPORT INFORMATION
  Report Type: Spontaneous
  Country: US (occurrence: US)
  Receive Date: 20240315
  Receipt Date: 20240315
  Transmission Date: 20240410
  Serious: Yes (Other)
  Sender: FDA-Public Use
  Company Number: US-INDIVIOR US-INDV-143427-2024

PATIENT

DRUGS (8)
  1. SUBLOCADE [Suspect]
     Active Substance: BUPRENORPHINE
     Indication: Drug dependence
     Dosage: 300 MILLIGRAM, QMO
     Route: 065
     Dates: start: 20240117
  2. SUBLOCADE [Suspect]
     Active Substance: BUPRENORPHINE
  3. SUBOXONE [Suspect]
     Active Substance: BUPRENORPHINE HYDROCHLORIDE\NALOXONE HYDROCHLORIDE
     Indication: Drug dependence
     Dosage: 2 MILLIGRAM, UNKNOWN
     Route: 060
  4. KLONOPIN [Concomitant]
     Active Substance: CLONAZEPAM
     Indication: Anxiety
     Dosage: UNK
     Route: 065
  5. TOPAMAX [Concomitant]
     Active Substance: TOPIRAMATE
     Indication: Product used for unknown indication
     Dosage: UNK
     Route: 065
  6. PROZAC [Concomitant]
     Active Substance: FLUOXETINE HYDROCHLORIDE
     Indication: Product used for unknown indication
     Dosage: UNK
     Route: 065
  7. MIRTAZAPINE [Concomitant]
     Active Substance: MIRTAZAPINE
     Indication: Product used for unknown indication
     Dosage: UNK
     Route: 065
  8. ALLOPURINOL [Concomitant]
     Active Substance: ALLOPURINOL
     Indication: Product used for unknown indication
     Dosage: UNK
     Route: 065

REACTIONS (19)
  - Intentional self-injury [Unknown]
  - Condition aggravated [Unknown]
  - Hallucination, visual [Unknown]
  - Fall [Unknown]
  - Weight increased [Unknown]
  - Vertigo [Unknown]
  - Oedema peripheral [Unknown]
  - Euphoric mood [Recovered/Resolved]
  - Speech disorder [Unknown]
  - Insomnia [Unknown]
  - Somnolence [Unknown]
  - Mood altered [Unknown]
  - Memory impairment [Unknown]
  - Muscle twitching [Not Recovered/Not Resolved]
  - Fatigue [Unknown]
  - Drug intolerance [Unknown]
  - Constipation [Unknown]
  - Mental impairment [Unknown]
  - Drug effect less than expected [Unknown]
